FAERS Safety Report 13201488 (Version 1)
Quarter: 2017Q1

REPORT INFORMATION
  Report Type: Spontaneous
  Country: GB (occurrence: GB)
  Receive Date: 20170209
  Receipt Date: 20170209
  Transmission Date: 20170428
  Serious: Yes (Hospitalization)
  Sender: FDA-Public Use
  Company Number: GB-ASTRAZENECA-2017SE12782

PATIENT
  Age: 88 Year
  Sex: Female

DRUGS (9)
  1. TOBRAMYCIN. [Concomitant]
     Active Substance: TOBRAMYCIN
     Route: 055
  2. TEICOPLANIN [Suspect]
     Active Substance: TEICOPLANIN
     Indication: OSTEOMYELITIS
     Route: 042
     Dates: start: 20170114, end: 20170122
  3. MIRTAZAPINE. [Concomitant]
     Active Substance: MIRTAZAPINE
  4. CLOPIDOGREL [Concomitant]
     Active Substance: CLOPIDOGREL BISULFATE
  5. GENTAMICIN. [Concomitant]
     Active Substance: GENTAMICIN
  6. TAMIFLU [Concomitant]
     Active Substance: OSELTAMIVIR PHOSPHATE
  7. TINZAPARIN [Concomitant]
     Active Substance: TINZAPARIN
  8. MEROPENEM. [Suspect]
     Active Substance: MEROPENEM
     Indication: PNEUMONIA
     Route: 042
     Dates: start: 20170114, end: 20170122
  9. FOSFOMYCIN [Concomitant]
     Active Substance: FOSFOMYCIN

REACTIONS (1)
  - Pancytopenia [Not Recovered/Not Resolved]

NARRATIVE: CASE EVENT DATE: 20170121
